FAERS Safety Report 16132696 (Version 1)
Quarter: 2019Q1

REPORT INFORMATION
  Report Type: Other
  Country: GB (occurrence: GB)
  Receive Date: 20190329
  Receipt Date: 20190329
  Transmission Date: 20190418
  Serious: No
  Sender: FDA-Public Use
  Company Number: GB-LUPIN PHARMACEUTICALS INC.-2018-08731

PATIENT
  Age: 65 Year
  Sex: Female
  Weight: 77 kg

DRUGS (16)
  1. SERTRALINE [Suspect]
     Active Substance: SERTRALINE HYDROCHLORIDE
     Indication: PRODUCT USED FOR UNKNOWN INDICATION
     Dosage: UNK
     Route: 065
     Dates: start: 20181122
  2. CITALOPRAM [Concomitant]
     Active Substance: CITALOPRAM HYDROBROMIDE
     Indication: ILL-DEFINED DISORDER
     Dosage: 1 DF, QD, ONE TO BE TAKEN DAILY
     Route: 065
     Dates: start: 20170523, end: 20180912
  3. PARACETAMOL [Concomitant]
     Active Substance: ACETAMINOPHEN
     Indication: ILL-DEFINED DISORDER
     Dosage: UNK, 2 FOUR TIMES A DAY FOR PAIN PRN
     Route: 065
     Dates: start: 20160601
  4. LACRI-LUBE [Concomitant]
     Indication: ILL-DEFINED DISORDER
     Dosage: UNK, TO BE APPLIED TO THE AFFECTED EYE(S) AT NIGHT
     Route: 065
     Dates: start: 20180912, end: 20180917
  5. DIAZEPAM. [Concomitant]
     Active Substance: DIAZEPAM
     Indication: ILL-DEFINED DISORDER
     Dosage: UNK, TAKE ONE OR TWO DAILY WHEN REQUIRED
     Route: 065
     Dates: start: 20181122
  6. FUROSEMIDE. [Concomitant]
     Active Substance: FUROSEMIDE
     Indication: ILL-DEFINED DISORDER
     Dosage: UNK, TAKE ONE EACH MORNING
     Route: 065
     Dates: start: 20170209
  7. ATORVASTATIN [Concomitant]
     Active Substance: ATORVASTATIN
     Indication: ILL-DEFINED DISORDER
     Dosage: UNK, TAKE ONE DAILY
     Route: 065
     Dates: start: 20180312
  8. RAMIPRIL. [Concomitant]
     Active Substance: RAMIPRIL
     Indication: ILL-DEFINED DISORDER
     Dosage: 1 DF, QD, ONE TO BE TAKEN DAILY
     Route: 065
     Dates: start: 20140520
  9. BECLOMETASONE [Concomitant]
     Active Substance: BECLOMETHASONE DIPROPIONATE
     Indication: ILL-DEFINED DISORDER
     Dosage: UNK, TWO PUFFS TWICE DAILY
     Route: 065
     Dates: start: 20180611
  10. DOXAZOSIN [Concomitant]
     Active Substance: DOXAZOSIN\DOXAZOSIN MESYLATE
     Indication: ILL-DEFINED DISORDER
     Dosage: 1 DF, QD, ONE TO BE TAKEN DAILY
     Route: 065
     Dates: start: 20140520
  11. CARBOMER [Concomitant]
     Active Substance: CARBOMER
     Indication: ILL-DEFINED DISORDER
     Dosage: UNK, USE AS DIRECTED
     Route: 065
     Dates: start: 20180912, end: 20181010
  12. NITROFURANTOIN. [Concomitant]
     Active Substance: NITROFURANTOIN
     Indication: ILL-DEFINED DISORDER
     Dosage: UNK, TAKE ONE TWICE DAILY FOR 3 DAYS, TO TREAT INFECTION
     Route: 065
     Dates: start: 20181106, end: 20181109
  13. CLENIL MODULITE [Concomitant]
     Active Substance: BECLOMETHASONE DIPROPIONATE
     Indication: ILL-DEFINED DISORDER
     Dosage: UNK, 2 PUFFS BD
     Route: 065
     Dates: start: 20160504
  14. SALBUTAMOL [Concomitant]
     Active Substance: ALBUTEROL
     Indication: ILL-DEFINED DISORDER
     Dosage: UNK, INHALE 2 DOSES AS NEEDED
     Route: 065
     Dates: start: 20131217
  15. FENBID [Concomitant]
     Active Substance: IBUPROFEN
     Indication: ILL-DEFINED DISORDER
     Dosage: UNK, APPLY 3 TIMES/DAY
     Route: 065
     Dates: start: 20171127
  16. SERTRALINE [Concomitant]
     Active Substance: SERTRALINE HYDROCHLORIDE
     Indication: ILL-DEFINED DISORDER
     Dosage: UNK, HALF TABLET DAILY AFTER SLOW WITHDRAWL FROM CITALOPRAM IN NOV
     Route: 065
     Dates: start: 20181010

REACTIONS (1)
  - Tinnitus [Unknown]

NARRATIVE: CASE EVENT DATE: 20181122
